FAERS Safety Report 9992011 (Version 1)
Quarter: 2014Q1

REPORT INFORMATION
  Report Type: Report from Study
  Country: CH (occurrence: CH)
  Receive Date: 20140310
  Receipt Date: 20140310
  Transmission Date: 20141002
  Serious: Yes (Hospitalization)
  Sender: FDA-Public Use
  Company Number: CH-TEVA-467142ISR

PATIENT
  Age: 69 Year
  Sex: Male

DRUGS (2)
  1. GEMCITABINE [Suspect]
     Indication: PANCREATIC CARCINOMA
     Route: 065
  2. ELOXATIN [Suspect]
     Indication: PANCREATIC CARCINOMA
     Route: 065

REACTIONS (3)
  - Cholangitis [Recovered/Resolved]
  - Device occlusion [Recovered/Resolved]
  - Cholelithiasis [Unknown]
